FAERS Safety Report 9599369 (Version 1)
Quarter: 2013Q4

REPORT INFORMATION
  Report Type: Spontaneous
  Country: US (occurrence: US)
  Receive Date: 20131004
  Receipt Date: 20131004
  Transmission Date: 20140711
  Serious: No
  Sender: FDA-Public Use
  Company Number: US-AMGEN-USASP2013028703

PATIENT
  Age: 61 Year
  Sex: Female
  Weight: 102.49 kg

DRUGS (12)
  1. ENBREL [Suspect]
     Indication: PSORIASIS
     Dosage: 50 MG, 2 TIMES/WK,72-96 HOURS APART FOR THREE MONTHS
     Route: 058
     Dates: start: 20130403
  2. MELOXICAM [Concomitant]
     Dosage: 15 MG, UNK
  3. LEVEMIR [Concomitant]
     Dosage: UNK
  4. GLUCOPHAGE [Concomitant]
     Dosage: 500 MG, UNK
  5. GLIPIZIDE [Concomitant]
     Dosage: 10 MG, UNK
  6. OMEPRAZOLE [Concomitant]
     Dosage: 20 MG, UNK
  7. ZYRTEC ALLERGY [Concomitant]
     Dosage: 10 MG, UNK
  8. PAXIL                              /00500401/ [Concomitant]
     Dosage: 10 MG, UNK
  9. BENTYL [Concomitant]
     Dosage: 10 MG, UNK
  10. LIALDA [Concomitant]
     Dosage: 1.2 G, UNK
  11. VITAMIN B-12 [Concomitant]
     Dosage: 1000 MUG, UNK
  12. VITAMIN D                          /00107901/ [Concomitant]
     Dosage: 400 UNIT, UNK

REACTIONS (6)
  - Joint stiffness [Unknown]
  - Arthralgia [Unknown]
  - Sleep disorder due to general medical condition, insomnia type [Unknown]
  - Myalgia [Unknown]
  - Arthritis [Unknown]
  - Ear infection [Recovered/Resolved]
